FAERS Safety Report 8043680-4 (Version None)
Quarter: 2012Q1

REPORT INFORMATION
  Report Type: 
  Country: None (occurrence: None)
  Receive Date: 20120112
  Receipt Date: 20120109
  Transmission Date: 20120608
  Serious: Yes (Other)
  Sender: FDA-Public Use
  Company Number: US-MERCK-1201USA01017

PATIENT
  Age: 73 Year
  Sex: Female

DRUGS (2)
  1. VYTORIN [Suspect]
     Route: 048
     Dates: start: 20090701, end: 20111201
  2. VYTORIN [Suspect]
     Route: 048
     Dates: start: 20111201

REACTIONS (3)
  - DIZZINESS [None]
  - PALPITATIONS [None]
  - CARDIAC ARREST [None]
